FAERS Safety Report 16895027 (Version 1)
Quarter: 2019Q4

REPORT INFORMATION
  Report Type: Spontaneous
  Country: US (occurrence: US)
  Receive Date: 20191008
  Receipt Date: 20191008
  Transmission Date: 20200122
  Serious: Yes (Other)
  Sender: FDA-Public Use
  Company Number: US-INDIVIOR LIMITED-INDV-115560-2018

PATIENT
  Sex: Male

DRUGS (4)
  1. SUBOXONE [Suspect]
     Active Substance: BUPRENORPHINE HYDROCHLORIDE\NALOXONE HYDROCHLORIDE
     Dosage: ONE 8 MG FILM DAILY
     Route: 060
  2. ALCOHOL. [Suspect]
     Active Substance: ALCOHOL
     Indication: PRODUCT USED FOR UNKNOWN INDICATION
     Dosage: UNK
     Route: 065
  3. SUBOXONE [Suspect]
     Active Substance: BUPRENORPHINE HYDROCHLORIDE\NALOXONE HYDROCHLORIDE
     Indication: DRUG DEPENDENCE
     Dosage: TWO 8 MG FILMS ONCE DAILY
     Route: 060
  4. BUPRENORPHINE/NALOXONE 8 MG TABLET [Suspect]
     Active Substance: BUPRENORPHINE\NALOXONE
     Indication: DRUG DEPENDENCE
     Dosage: 2-4 MG DAILY BY CUTTING
     Route: 060

REACTIONS (7)
  - Nasal injury [Unknown]
  - Intentional underdose [Recovered/Resolved]
  - Abnormal behaviour [Unknown]
  - Pain [Unknown]
  - Wrong technique in product usage process [Not Recovered/Not Resolved]
  - Fall [Recovered/Resolved]
  - Drug dependence [Unknown]
